FAERS Safety Report 5843501-1 (Version None)
Quarter: 2008Q3

REPORT INFORMATION
  Report Type: 
  Country: None (occurrence: None)
  Receive Date: 20080813
  Receipt Date: 20080808
  Transmission Date: 20090109
  Serious: Yes (Disabling)
  Sender: FDA-Public Use
  Company Number: NL-WATSON-2008-04788

PATIENT
  Age: 9 Year
  Sex: Male

DRUGS (4)
  1. LIDOCAINE 1% W/ EPINEPHRINE 1:200,000 [Suspect]
     Indication: EPIDURAL ANAESTHESIA
     Dosage: UNK
     Route: 008
     Dates: start: 20080101, end: 20080101
  2. FENTANYL CITRATE [Suspect]
     Indication: EPIDURAL ANAESTHESIA
     Dosage: UNK
     Route: 008
     Dates: start: 20080101, end: 20080101
  3. CLONIDINE [Suspect]
     Indication: EPIDURAL ANAESTHESIA
     Dosage: UNK
     Route: 008
     Dates: start: 20080101, end: 20080101
  4. BUPIVACAIN HYDROCHLORID W/EPINEPHRIN [Suspect]
     Indication: EPIDURAL ANAESTHESIA
     Dosage: UNK
     Route: 008
     Dates: start: 20080101, end: 20080101

REACTIONS (1)
  - PARAPLEGIA [None]
